FAERS Safety Report 6073695-7 (Version None)
Quarter: 2009Q1

REPORT INFORMATION
  Report Type: 
  Country: None (occurrence: None)
  Receive Date: 20090211
  Receipt Date: 20090202
  Transmission Date: 20090719
  Serious: Yes (Hospitalization, Other)
  Sender: FDA-Public Use
  Company Number: GB-ABBOTT-09P-167-0501273-00

PATIENT
  Age: 9 Year
  Sex: Male

DRUGS (4)
  1. VALPROATE SODIUM [Suspect]
     Indication: CONVULSION PROPHYLAXIS
     Dosage: NOT REPORTED
  2. CLOBAZAM [Interacting]
     Indication: CONVULSION PROPHYLAXIS
     Dosage: NOT REPORTED
  3. LAMOTRIGINE [Interacting]
     Indication: CONVULSION PROPHYLAXIS
     Dosage: NOT REPORTED
  4. ETHOSUXIMIDE [Interacting]
     Indication: CONVULSION PROPHYLAXIS
     Dosage: NOT REPORTED

REACTIONS (4)
  - BLISTER [None]
  - DRUG INTERACTION [None]
  - NECROSIS [None]
  - SWEAT GLAND DISORDER [None]
